FAERS Safety Report 8602065-X (Version None)
Quarter: 2012Q3

REPORT INFORMATION
  Report Type: 
  Country: None (occurrence: None)
  Receive Date: 20120817
  Receipt Date: 20120810
  Transmission Date: 20120928
  Serious: Yes (Other)
  Sender: FDA-Public Use
  Company Number: TR-AMGEN-TURSP2012011351

PATIENT
  Age: 31 Year
  Sex: Male

DRUGS (3)
  1. ENBREL [Suspect]
     Indication: ANKYLOSING SPONDYLITIS
     Dosage: 50 MG, WEEKLY, MYCLIC
     Route: 058
     Dates: start: 20120401, end: 20120701
  2. ENBREL [Suspect]
     Dosage: 50 MG, WEEKLY, VIAL FORM
     Route: 058
     Dates: start: 20090819
  3. ENBREL [Suspect]
     Dosage: 50 MG, WEEKLY, MYCLIC
     Route: 058
     Dates: start: 20110823, end: 20120112

REACTIONS (9)
  - DIARRHOEA [None]
  - RESTLESSNESS [None]
  - BLOOD COUNT ABNORMAL [None]
  - GINGIVAL PAIN [None]
  - BENIGN SOFT TISSUE NEOPLASM [None]
  - FEAR [None]
  - MUSCULAR WEAKNESS [None]
  - PALATAL DISORDER [None]
  - GINGIVAL ABSCESS [None]
